FAERS Safety Report 4962377-8 (Version None)
Quarter: 2006Q2

REPORT INFORMATION
  Report Type: 
  Country: None (occurrence: None)
  Receive Date: 20060404
  Receipt Date: 20060322
  Transmission Date: 20061013
  Serious: No
  Sender: FDA-Public Use
  Company Number: 2006UW05024

PATIENT
  Age: 19 Year
  Sex: Male

DRUGS (2)
  1. SEROQUEL [Suspect]
     Route: 048
     Dates: start: 20050901
  2. BIAXIN [Concomitant]
     Indication: RESPIRATORY TRACT INFECTION

REACTIONS (1)
  - AGRANULOCYTOSIS [None]
